FAERS Safety Report 11724646 (Version 1)
Quarter: 2015Q4

REPORT INFORMATION
  Report Type: Spontaneous
  Country: US (occurrence: US)
  Receive Date: 20151111
  Receipt Date: 20151111
  Transmission Date: 20160304
  Serious: No
  Sender: FDA-Public Use
  Company Number: US-UCBSA-2014018001

PATIENT
  Sex: Male

DRUGS (2)
  1. KEPPRA XR [Suspect]
     Active Substance: LEVETIRACETAM
     Indication: SEIZURE
     Dosage: DOSE: 750 MG4 TABS= TOTAL DAILY DOSE: 3000 MG
  2. VIMPAT [Suspect]
     Active Substance: LACOSAMIDE
     Indication: SEIZURE
     Dosage: DOSE: 200 MG 2 TABS DAILY, TOTAL DAILY DOSE:400  MG

REACTIONS (2)
  - Epilepsy [Not Recovered/Not Resolved]
  - Adverse event [Not Recovered/Not Resolved]
